FAERS Safety Report 19070476 (Version 1)
Quarter: 2021Q1

REPORT INFORMATION
  Report Type: Report from Study
  Country: US (occurrence: US)
  Receive Date: 20210329
  Receipt Date: 20210329
  Transmission Date: 20210420
  Serious: Yes (Hospitalization)
  Sender: FDA-Public Use
  Company Number: US-BIOGEN-2021BI00994582

PATIENT
  Sex: Female

DRUGS (1)
  1. VUMERITY [Suspect]
     Active Substance: DIROXIMEL FUMARATE
     Indication: MULTIPLE SCLEROSIS
     Route: 048

REACTIONS (8)
  - Renal pain [Unknown]
  - Loss of control of legs [Recovered/Resolved]
  - Kidney infection [Unknown]
  - Hypersomnia [Unknown]
  - Fall [Recovered/Resolved]
  - Head injury [Unknown]
  - Back injury [Unknown]
  - Dyspnoea [Unknown]
